FAERS Safety Report 7606275-X (Version None)
Quarter: 2011Q3

REPORT INFORMATION
  Report Type: 
  Country: None (occurrence: None)
  Receive Date: 20110713
  Receipt Date: 20110705
  Transmission Date: 20111222
  Serious: Yes (Death)
  Sender: FDA-Public Use
  Company Number: JP-BAYER-2011-048621

PATIENT
  Age: 65 Year
  Sex: Male
  Weight: 38 kg

DRUGS (10)
  1. FENTANYL [Concomitant]
     Indication: PAIN MANAGEMENT
     Dosage: DAILY DOSE 16.8 MG
     Route: 062
     Dates: start: 20110401, end: 20110605
  2. NEXAVAR [Suspect]
     Indication: HEPATIC NEOPLASM MALIGNANT
     Dosage: 200 MG, QID
     Route: 048
     Dates: start: 20110514, end: 20110516
  3. MORPHINE HCL ELIXIR [Concomitant]
     Indication: PAIN MANAGEMENT
     Dosage: 40 MG, PRN
     Route: 048
     Dates: start: 20110519, end: 20110604
  4. NEXAVAR [Suspect]
     Dosage: 200 MG, QID
     Route: 048
     Dates: start: 20110520
  5. LANSOPRAZOLE [Concomitant]
     Indication: GASTRIC ULCER
     Dosage: DAILY DOSE 15 MG
     Route: 048
     Dates: end: 20110604
  6. ADALAT [Concomitant]
     Indication: HYPERTENSION
     Dosage: DAILY DOSE 40 MG
     Route: 048
     Dates: end: 20110604
  7. MAGMITT [Concomitant]
     Indication: CONSTIPATION
     Dosage: DAILY DOSE 990 MG
     Route: 048
     Dates: end: 20110604
  8. DECADRON [Concomitant]
     Indication: PAIN MANAGEMENT
     Dosage: DAILY DOSE 2 MG
     Route: 048
     Dates: end: 20110604
  9. LOXONIN [Concomitant]
     Indication: PAIN MANAGEMENT
     Dosage: DAILY DOSE 180 MG
     Route: 048
     Dates: end: 20110604
  10. MUCOSTA [Concomitant]
     Indication: GASTRITIS
     Dosage: DAILY DOSE 300 MG
     Route: 048
     Dates: end: 20110604

REACTIONS (6)
  - SEPTIC SHOCK [None]
  - PRODUCTIVE COUGH [None]
  - PYREXIA [None]
  - AMMONIA INCREASED [None]
  - LUNG INFECTION PSEUDOMONAL [None]
  - CONSTIPATION [None]
